FAERS Safety Report 20467219 (Version 2)
Quarter: 2022Q2

REPORT INFORMATION
  Report Type: Report from Study
  Country: PR (occurrence: PR)
  Receive Date: 20220214
  Receipt Date: 20220414
  Transmission Date: 20220721
  Serious: Yes (Other)
  Sender: FDA-Public Use
  Company Number: PR-ABBVIE-22K-131-4274961-00

PATIENT
  Age: 70 Year
  Sex: Male
  Weight: 74.910 kg

DRUGS (1)
  1. VENETOCLAX [Suspect]
     Active Substance: VENETOCLAX
     Indication: Chronic lymphocytic leukaemia
     Route: 048
     Dates: start: 20220120

REACTIONS (3)
  - Pulmonary oedema [Unknown]
  - Herpes virus infection [Recovering/Resolving]
  - Fatigue [Unknown]
